FAERS Safety Report 12169018 (Version 2)
Quarter: 2016Q1

REPORT INFORMATION
  Report Type: Spontaneous
  Country: NL (occurrence: NL)
  Receive Date: 20160310
  Receipt Date: 20160321
  Transmission Date: 20160526
  Serious: Yes (Other)
  Sender: FDA-Public Use
  Company Number: NL-MYLANLABS-2016M1009599

PATIENT

DRUGS (5)
  1. FEXOFENADINE HCL 180 A, FILMOMHULDE TABLETTEN 180 MG [Suspect]
     Active Substance: FEXOFENADINE HYDROCHLORIDE
     Indication: MASTOCYTOSIS
     Dosage: 180 MG TABLET FOR EVERY 8 HOURS
     Route: 048
  2. AMLODIPINE [Concomitant]
     Active Substance: AMLODIPINE BESYLATE
     Indication: PRODUCT USED FOR UNKNOWN INDICATION
     Dosage: UNK
  3. PANTOZOL [Concomitant]
     Active Substance: PANTOPRAZOLE SODIUM
     Indication: PRODUCT USED FOR UNKNOWN INDICATION
     Dosage: UNK
     Route: 065
  4. METOPROLOL. [Concomitant]
     Active Substance: METOPROLOL
     Indication: PRODUCT USED FOR UNKNOWN INDICATION
     Dosage: UNK
  5. ASCAL                              /00002702/ [Concomitant]
     Active Substance: ASPIRIN CALCIUM
     Indication: PRODUCT USED FOR UNKNOWN INDICATION
     Dosage: UNK
     Route: 065

REACTIONS (11)
  - Hypersensitivity [Recovered/Resolved]
  - Weight decreased [Unknown]
  - Toothache [Unknown]
  - Choking sensation [Unknown]
  - Pain in extremity [Unknown]
  - Pharyngeal oedema [Recovered/Resolved]
  - Product quality issue [Unknown]
  - Swollen tongue [Recovered/Resolved]
  - Headache [Unknown]
  - Confusional state [Unknown]
  - Dysgeusia [Recovered/Resolved]
